FAERS Safety Report 21610048 (Version 2)
Quarter: 2023Q1

REPORT INFORMATION
  Report Type: Report from Study
  Country: US (occurrence: US)
  Receive Date: 20221117
  Receipt Date: 20230119
  Transmission Date: 20230417
  Serious: No
  Sender: FDA-Public Use
  Company Number: US-ABBVIE-22K-163-4490848-00

PATIENT
  Age: 73 Year
  Sex: Male
  Weight: 51.7 kg

DRUGS (26)
  1. HUMIRA [Suspect]
     Active Substance: ADALIMUMAB
     Indication: Rheumatoid arthritis
     Dosage: FIRST ADMIN DATE WAS 2022
     Route: 058
  2. HUMIRA [Suspect]
     Active Substance: ADALIMUMAB
     Indication: Crohn^s disease
     Dosage: CITRATE FREE,?FORM STRENGTH: 40 MG
     Route: 058
     Dates: start: 2022, end: 202207
  3. MODERNA COVID-19 VACCINE [Concomitant]
     Active Substance: ELASOMERAN
     Indication: COVID-19 immunisation
     Dosage: 2ND DOSE
     Route: 030
     Dates: start: 20210317, end: 20210317
  4. MODERNA COVID-19 VACCINE [Concomitant]
     Active Substance: ELASOMERAN
     Indication: COVID-19 immunisation
     Dosage: 2ND DOSE, ONCE
     Route: 030
     Dates: start: 20210314, end: 20210314
  5. MODERNA COVID-19 VACCINE [Concomitant]
     Active Substance: ELASOMERAN
     Indication: COVID-19 immunisation
     Dosage: 3RD DOSE
     Route: 030
     Dates: start: 20210917, end: 20210917
  6. MODERNA COVID-19 VACCINE [Concomitant]
     Active Substance: ELASOMERAN
     Indication: COVID-19 immunisation
     Dosage: 1ST DOSE, ONCE
     Route: 030
     Dates: start: 20210219, end: 20210219
  7. MODERNA COVID-19 VACCINE [Concomitant]
     Active Substance: ELASOMERAN
     Indication: COVID-19 immunisation
     Dosage: 2ND COVID BOOSTER INJECTION
     Route: 030
     Dates: start: 20220421, end: 20220421
  8. MODERNA COVID-19 VACCINE [Concomitant]
     Active Substance: ELASOMERAN
     Indication: COVID-19 immunisation
     Dosage: COVID BOOSTER INJECTION, ONCE
     Route: 030
     Dates: start: 20220920, end: 20220920
  9. MODERNA COVID-19 VACCINE [Concomitant]
     Active Substance: ELASOMERAN
     Indication: COVID-19 immunisation
     Dosage: 1ST DOSE
     Route: 030
     Dates: start: 20210217, end: 20210217
  10. IRON [Concomitant]
     Active Substance: IRON
     Indication: Product used for unknown indication
  11. HYDROCORTISONE [Concomitant]
     Active Substance: HYDROCORTISONE
     Indication: Pruritus
  12. DICYCLOMINE [Concomitant]
     Active Substance: DICYCLOMINE HYDROCHLORIDE
     Indication: Abdominal pain
  13. ACETAMINOPHEN [Concomitant]
     Active Substance: ACETAMINOPHEN
     Indication: Pain
  14. FAMOTIDINE AN [Concomitant]
     Indication: Dyspepsia
  15. DIPHENOXYLATE [Concomitant]
     Active Substance: DIPHENOXYLATE
     Indication: Diarrhoea
  16. BLEPHADEX EYELID WIPES [Concomitant]
     Indication: Pruritus
  17. Blink [Concomitant]
     Indication: Dry eye
  18. EMGALITY [Concomitant]
     Active Substance: GALCANEZUMAB-GNLM
     Indication: Headache
  19. SUMATRIPTAN [Concomitant]
     Active Substance: SUMATRIPTAN
     Indication: Product used for unknown indication
  20. FOLIC ACID [Concomitant]
     Active Substance: FOLIC ACID
     Indication: Infection prophylaxis
  21. VICKS VAPORUB [Concomitant]
     Active Substance: CAMPHOR (SYNTHETIC)\EUCALYPTUS OIL\MENTHOL
     Indication: Product used for unknown indication
  22. LEFLUNOMIDE GA [Concomitant]
     Indication: Rheumatoid arthritis
  23. GEMTESA [Concomitant]
     Active Substance: VIBEGRON
     Indication: Micturition urgency
  24. FLONASE [Concomitant]
     Active Substance: FLUTICASONE PROPIONATE
     Indication: Hypersensitivity
  25. PROCTOSOL HC [Concomitant]
     Indication: Product used for unknown indication
  26. FENOFIBRATE S [Concomitant]
     Indication: Blood cholesterol abnormal

REACTIONS (2)
  - Prostatic disorder [Not Recovered/Not Resolved]
  - COVID-19 [Recovered/Resolved]

NARRATIVE: CASE EVENT DATE: 20220201
